FAERS Safety Report 7763654 (Version 2)
Quarter: 2012Q4

REPORT INFORMATION
  Report Type: 
  Country: US (occurrence: US)
  Receive Date: 20110118
  Receipt Date: 20120910
  Transmission Date: 20130627
  Serious: Yes (Other)
  Sender: FDA-Public Use
  Company Number: US-ROCHE-731132

PATIENT
  Age: 14 Year
  Sex: Male
  Weight: 61.2 kg

DRUGS (8)
  1. ACCUTANE [Suspect]
     Indication: ACNE
     Route: 065
  2. ACCUTANE [Suspect]
     Dosage: STRENGTH: 40 MG, 20 MG
     Route: 065
     Dates: start: 200010, end: 20001106
  3. ACCUTANE [Suspect]
     Dosage: DOSE INCREASED
     Route: 065
     Dates: start: 20001106, end: 2001
  4. DEPAKOTE [Concomitant]
     Indication: MIGRAINE
  5. CELEXA [Concomitant]
     Indication: DEPRESSION
  6. ADDERALL [Concomitant]
     Indication: ATTENTION DEFICIT/HYPERACTIVITY DISORDER
  7. IMIPRAMINE [Concomitant]
  8. AUGMENTIN [Concomitant]

REACTIONS (9)
  - Colitis ulcerative [Unknown]
  - Gastrointestinal injury [Unknown]
  - Gastrointestinal haemorrhage [Unknown]
  - Depression [Unknown]
  - Suicidal ideation [Unknown]
  - Conjunctivitis viral [Unknown]
  - Blood triglycerides increased [Unknown]
  - Blood alkaline phosphatase increased [Unknown]
  - Epistaxis [Unknown]
